FAERS Safety Report 14609218 (Version 6)
Quarter: 2019Q3

REPORT INFORMATION
  Report Type: Report from Study
  Country: JP (occurrence: JP)
  Receive Date: 20180307
  Receipt Date: 20190711
  Transmission Date: 20191004
  Serious: Yes (Hospitalization, Other)
  Sender: FDA-Public Use
  Company Number: JP-BIOGEN-2018BI00537240

PATIENT
  Age: 11 Month
  Sex: Female
  Weight: 6.3 kg

DRUGS (17)
  1. CARBOCISTEINE [Concomitant]
     Active Substance: CARBOCYSTEINE
     Indication: SPINAL MUSCULAR ATROPHY
     Route: 050
  2. SPINRAZA [Suspect]
     Active Substance: NUSINERSEN
     Route: 050
     Dates: start: 20181015, end: 20181015
  3. TAKECAB [Concomitant]
     Active Substance: VONOPRAZAN FUMURATE
     Indication: GASTRIC HAEMORRHAGE
     Route: 050
     Dates: start: 20170807
  4. SPINRAZA [Suspect]
     Active Substance: NUSINERSEN
     Route: 050
     Dates: start: 20170904, end: 20170904
  5. SPINRAZA [Suspect]
     Active Substance: NUSINERSEN
     Route: 050
     Dates: start: 20171013, end: 20171013
  6. RAVONAL [Concomitant]
     Active Substance: THIOPENTAL
     Route: 042
     Dates: start: 20170904, end: 20170904
  7. MIDAZOLAM [Suspect]
     Active Substance: MIDAZOLAM HYDROCHLORIDE
     Indication: PRODUCT USED FOR UNKNOWN INDICATION
     Route: 065
  8. MOSAPRIDE CITRATE HYDRATE [Concomitant]
     Active Substance: MOSAPRIDE CITRATE DIHYDRATE
     Indication: GASTROOESOPHAGEAL REFLUX DISEASE
     Route: 050
  9. DAIKENCHUTO [Concomitant]
     Active Substance: HERBALS
     Indication: CONSTIPATION
     Route: 050
  10. RAVONAL [Concomitant]
     Active Substance: THIOPENTAL
     Route: 042
     Dates: start: 20170821, end: 20170821
  11. SPINRAZA [Suspect]
     Active Substance: NUSINERSEN
     Route: 050
     Dates: start: 20180213, end: 20180213
  12. FENTANYL CITRATE. [Suspect]
     Active Substance: FENTANYL CITRATE
     Indication: PRODUCT USED FOR UNKNOWN INDICATION
     Route: 065
  13. RAVONAL [Concomitant]
     Active Substance: THIOPENTAL
     Route: 042
     Dates: start: 20171013, end: 20171013
  14. SPINRAZA [Suspect]
     Active Substance: NUSINERSEN
     Indication: SPINAL MUSCULAR ATROPHY
     Route: 050
     Dates: start: 20170807, end: 20170807
  15. SPINRAZA [Suspect]
     Active Substance: NUSINERSEN
     Route: 050
     Dates: start: 20170821, end: 20170821
  16. SPINRAZA [Suspect]
     Active Substance: NUSINERSEN
     Route: 050
     Dates: start: 20180612, end: 20180612
  17. RAVONAL [Concomitant]
     Active Substance: THIOPENTAL
     Indication: ANAESTHESIA PROCEDURE
     Route: 042
     Dates: start: 20170807, end: 20170807

REACTIONS (2)
  - Respiratory syncytial virus infection [Recovered/Resolved]
  - Pneumonia [Recovered/Resolved]

NARRATIVE: CASE EVENT DATE: 20180223
